FAERS Safety Report 9631177 (Version 1)
Quarter: 2013Q4

REPORT INFORMATION
  Report Type: Spontaneous
  Country: US (occurrence: None)
  Receive Date: 20131016
  Receipt Date: 20131016
  Transmission Date: 20140711
  Serious: No
  Sender: FDA-Public Use
  Company Number: None

PATIENT
  Age: 64 Year
  Sex: Male

DRUGS (1)
  1. TICE BCG LIVE (BCG LIVE) POWDER FOR INSTILLATION FLUID [Suspect]
     Dosage: POWDER FOR INSTILLATION FLUID

REACTIONS (3)
  - Penile haemorrhage [None]
  - Drug dose omission [None]
  - Catheter site haemorrhage [None]
